FAERS Safety Report 9203722 (Version 1)
Quarter: 2013Q1

REPORT INFORMATION
  Report Type: Spontaneous
  Country: US (occurrence: None)
  Receive Date: 20120709
  Receipt Date: 20120709
  Transmission Date: 20140127
  Serious: No
  Sender: FDA-Public Use
  Company Number: PHEH2011US012186

PATIENT
  Age: 66 Year
  Sex: Female
  Weight: 66.2 kg

DRUGS (10)
  1. GLEEVEC [Suspect]
     Indication: CHRONIC MYELOID LEUKAEMIA
     Route: 048
     Dates: start: 20110209
  2. ALLOPURINOL [Concomitant]
  3. FEMARA (LETROZOLE) [Concomitant]
  4. FLUOXETINE (FLUOXETINE) [Concomitant]
  5. HYDREA (HYDROXYCARBAMIDE) [Concomitant]
  6. MAG-OX (MAGNESIUM OXIDE) [Concomitant]
  7. POTASSIUM (POTASSIUM) [Concomitant]
  8. VITAMIN D (ERGOCALCIFEROL) [Concomitant]
  9. AMBIEN (ZOLPIDEM TARTRATE) [Concomitant]
  10. LEVAQUIN (LEVOFLOXACIN) [Concomitant]

REACTIONS (2)
  - Chronic myeloid leukaemia [None]
  - Neoplasm malignant [None]
